FAERS Safety Report 5513341-1 (Version None)
Quarter: 2007Q4

REPORT INFORMATION
  Report Type: 
  Country: None (occurrence: None)
  Receive Date: 20071108
  Receipt Date: 20071023
  Transmission Date: 20080405
  Serious: Yes (Hospitalization)
  Sender: FDA-Public Use
  Company Number: 163444USA

PATIENT
  Age: 68 Year
  Sex: Female

DRUGS (1)
  1. CISPLATIN [Suspect]
     Indication: THYMOMA

REACTIONS (1)
  - COLITIS ISCHAEMIC [None]
